FAERS Safety Report 6576039-7 (Version None)
Quarter: 2010Q1

REPORT INFORMATION
  Report Type: 
  Country: None (occurrence: None)
  Receive Date: 20100209
  Receipt Date: 20100128
  Transmission Date: 20100710
  Serious: Yes (Other)
  Sender: FDA-Public Use
  Company Number: PHEH2010US01690

PATIENT
  Sex: Male

DRUGS (1)
  1. GLEEVEC [Suspect]
     Indication: CHLOROMA
     Dosage: 400 MG, QD
     Route: 048
     Dates: start: 20090601

REACTIONS (2)
  - HEAD INJURY [None]
  - NAUSEA [None]
